FAERS Safety Report 7420962-8 (Version None)
Quarter: 2011Q2

REPORT INFORMATION
  Report Type: 
  Country: None (occurrence: None)
  Receive Date: 20110418
  Receipt Date: 20110411
  Transmission Date: 20111010
  Serious: Yes (Hospitalization)
  Sender: FDA-Public Use
  Company Number: FR-ROCHE-770723

PATIENT
  Sex: Female

DRUGS (2)
  1. FLUOROURACIL [Suspect]
     Indication: COLON CANCER METASTATIC
     Dosage: FOURTH CYCLE
     Route: 042
     Dates: start: 20110315, end: 20110315
  2. AVASTIN [Suspect]
     Indication: COLON CANCER METASTATIC
     Dosage: FOURTH CYCLE
     Route: 042
     Dates: start: 20110315, end: 20110315

REACTIONS (3)
  - HAPTOGLOBIN DECREASED [None]
  - THROMBOCYTOPENIA [None]
  - HAEMOLYTIC ANAEMIA [None]
